FAERS Safety Report 7022052-5 (Version None)
Quarter: 2010Q3

REPORT INFORMATION
  Report Type: 
  Country: None (occurrence: None)
  Receive Date: 20100928
  Receipt Date: 20100917
  Transmission Date: 20110219
  Serious: Yes (Other)
  Sender: FDA-Public Use
  Company Number: 2010MA002788

PATIENT
  Age: 81 Year
  Sex: Female

DRUGS (20)
  1. SPIRONOLACTONE [Suspect]
     Dosage: 25 MG
     Dates: start: 20100830
  2. DALTEPARIN SODIUM [Concomitant]
  3. DOSULEPIN [Concomitant]
  4. ACETYLSALICYLIC ACID [Concomitant]
  5. SIMVASTATIN [Concomitant]
  6. LEVOTHYROXINE SODIUM [Concomitant]
  7. DIGOXIN [Concomitant]
  8. OMEPRAZOLE [Concomitant]
  9. BECLOMETHASONE DIPROPIONATE [Concomitant]
  10. PARACETAMOL [Concomitant]
  11. SALBUTAMOL [Concomitant]
  12. CODEINE [Concomitant]
  13. CYCLIZINE [Concomitant]
  14. FUROSEMIDE [Concomitant]
  15. ZOLPIDEM TARTRATE [Concomitant]
  16. TECHNOLOGY, INC [Concomitant]
  17. CLOPIDOGREL [Concomitant]
  18. FERROUS SULFATE [Concomitant]
  19. DEXAMETHASONE ELIXIR USP [Concomitant]
  20. ZOLPIDEM TARTRATE [Concomitant]

REACTIONS (1)
  - NEUTROPENIA [None]
